FAERS Safety Report 13549757 (Version 5)
Quarter: 2018Q1

REPORT INFORMATION
  Report Type: Report from Study
  Country: US (occurrence: US)
  Receive Date: 20170516
  Receipt Date: 20180313
  Transmission Date: 20180508
  Serious: No
  Sender: FDA-Public Use
  Company Number: PHEH2017US014562

PATIENT
  Sex: Female

DRUGS (1)
  1. AFINITOR [Suspect]
     Active Substance: EVEROLIMUS
     Indication: ANGIOMYOLIPOMA
     Dosage: 5 MG, QD
     Route: 048
     Dates: start: 20140219

REACTIONS (6)
  - Hepatic lesion [Unknown]
  - Ill-defined disorder [Unknown]
  - Fatigue [Recovering/Resolving]
  - Nausea [Unknown]
  - Dysphonia [Unknown]
  - Anaemia [Unknown]
